FAERS Safety Report 10172871 (Version 1)
Quarter: 2014Q2

REPORT INFORMATION
  Report Type: Spontaneous
  Country: CA (occurrence: CA)
  Receive Date: 20140515
  Receipt Date: 20140515
  Transmission Date: 20141212
  Serious: Yes (Hospitalization)
  Sender: FDA-Public Use
  Company Number: CA-ROCHE-1400612

PATIENT
  Age: 49 Year
  Sex: Female

DRUGS (13)
  1. RITUXAN [Suspect]
     Indication: PRODUCT USED FOR UNKNOWN INDICATION
     Route: 065
  2. GRAVOL [Suspect]
     Indication: PRODUCT USED FOR UNKNOWN INDICATION
     Route: 065
  3. SOLU-MEDROL [Suspect]
     Indication: PRODUCT USED FOR UNKNOWN INDICATION
     Route: 042
  4. ASA [Concomitant]
     Route: 065
  5. COENZYME Q10 COMPLEX (UNK INGREDIENTS) [Concomitant]
     Route: 065
  6. LAMOTRIGINE [Concomitant]
     Route: 065
  7. OMEGA 3 [Concomitant]
     Route: 065
  8. VALSARTAN [Concomitant]
     Route: 065
  9. VITAMIN B12 [Concomitant]
     Route: 065
  10. VITAMIN B6 [Concomitant]
     Route: 065
  11. VITAMIN C [Concomitant]
     Route: 065
  12. ATORVASTATIN [Concomitant]
     Route: 065
  13. FOLIC ACID [Concomitant]

REACTIONS (4)
  - Delirium [Unknown]
  - Emotional disorder [Unknown]
  - Hypersensitivity [Unknown]
  - Influenza like illness [Unknown]
